FAERS Safety Report 11999374 (Version 2)
Quarter: 2016Q1

REPORT INFORMATION
  Report Type: Spontaneous
  Country: US (occurrence: US)
  Receive Date: 20160204
  Receipt Date: 20160211
  Transmission Date: 20160526
  Serious: Yes (Death, Hospitalization)
  Sender: FDA-Public Use
  Company Number: US-BEH-2016058471

PATIENT
  Age: 34 Year
  Sex: Male
  Weight: 72 kg

DRUGS (1)
  1. STIMATE [Suspect]
     Active Substance: DESMOPRESSIN ACETATE
     Indication: VON WILLEBRAND^S DISEASE
     Dosage: 1.5 MG/ML STRENGTH (INTRANASALLY 2 PUFFS EVERY 8 TO 12 HOURS PM)
     Route: 045
     Dates: start: 20080409, end: 20160112

REACTIONS (5)
  - Kidney infection [Unknown]
  - Cardiac valve disease [Unknown]
  - Death [Fatal]
  - Cardiac operation [Unknown]
  - Sepsis [Unknown]

NARRATIVE: CASE EVENT DATE: 20160112
